FAERS Safety Report 12582644 (Version 3)
Quarter: 2016Q3

REPORT INFORMATION
  Report Type: Spontaneous
  Country: US (occurrence: US)
  Receive Date: 20160722
  Receipt Date: 20160808
  Transmission Date: 20161109
  Serious: No
  Sender: FDA-Public Use
  Company Number: US-BEH-2016062340

PATIENT
  Age: 63 Year
  Sex: Female
  Weight: 60 kg

DRUGS (22)
  1. CYCLOSPORINE. [Concomitant]
     Active Substance: CYCLOSPORINE
  2. DOCUSATE [Concomitant]
     Active Substance: DOCUSATE
  3. WELLBUTRIN [Concomitant]
     Active Substance: BUPROPION HYDROCHLORIDE
  4. PREDNISONE. [Concomitant]
     Active Substance: PREDNISONE
  5. BACTRIM [Concomitant]
     Active Substance: SULFAMETHOXAZOLE\TRIMETHOPRIM
  6. EPIPEN [Concomitant]
     Active Substance: EPINEPHRINE
  7. XANAX [Concomitant]
     Active Substance: ALPRAZOLAM
  8. ASPIRIN. [Concomitant]
     Active Substance: ASPIRIN
  9. PROPRANOLOL [Concomitant]
     Active Substance: PROPRANOLOL\PROPRANOLOL HYDROCHLORIDE
  10. NORVASC [Concomitant]
     Active Substance: AMLODIPINE BESYLATE
  11. TRAMADOL. [Concomitant]
     Active Substance: TRAMADOL
  12. VITAMIN D [Concomitant]
     Active Substance: CHOLECALCIFEROL
  13. DIPHENHYDRAMINE. [Concomitant]
     Active Substance: DIPHENHYDRAMINE
  14. FOSAMAX [Concomitant]
     Active Substance: ALENDRONATE SODIUM
  15. HIZENTRA [Suspect]
     Active Substance: HUMAN IMMUNOGLOBULIN G
     Indication: IMMUNODEFICIENCY COMMON VARIABLE
     Dosage: AS DIRECTED
     Route: 058
  16. CELEXA [Concomitant]
     Active Substance: CITALOPRAM HYDROBROMIDE
  17. MAGOX [Concomitant]
  18. GLIMEPIRIDE. [Concomitant]
     Active Substance: GLIMEPIRIDE
  19. ACETAMINOPHEN. [Concomitant]
     Active Substance: ACETAMINOPHEN
  20. GABAPENTIN. [Concomitant]
     Active Substance: GABAPENTIN
  21. CELLCEPT [Concomitant]
     Active Substance: MYCOPHENOLATE MOFETIL\MYCOPHENOLATE MOFETIL HYDROCHLORIDE
  22. PANTOPRAZOLE [Concomitant]
     Active Substance: PANTOPRAZOLE SODIUM

REACTIONS (1)
  - Urinary tract infection [Unknown]

NARRATIVE: CASE EVENT DATE: 20160229
